FAERS Safety Report 8465393 (Version 3)
Quarter: 2013Q4

REPORT INFORMATION
  Report Type: Spontaneous
  Country: US (occurrence: None)
  Receive Date: 20120308
  Receipt Date: 20131108
  Transmission Date: 20140711
  Serious: Yes (Other)
  Sender: FDA-Public Use
  Company Number: 2012031443

PATIENT
  Age: 54 Year
  Sex: Male
  Weight: 95.26 kg

DRUGS (6)
  1. BERINERT [Suspect]
     Indication: HEREDITARY ANGIOEDEMA
     Dosage: (2000 UNITS PRN AT A RATE OF 4 ML PER MINUTE INTRAVENOUS (NOT OTHERWISE SPECIFIED))
     Route: 042
  2. SODIUM CHLORIDE [Concomitant]
  3. ATENOLOL (ATENOLOL) [Concomitant]
  4. PRILOSEC [Concomitant]
  5. PAXIL [Concomitant]
  6. HYDROCHLOROTHIAZIDE (HYDROCHLOROTHIAZIDE) [Concomitant]

REACTIONS (2)
  - Angioedema [None]
  - Impaired work ability [None]
